FAERS Safety Report 7858929-8 (Version None)
Quarter: 2011Q4

REPORT INFORMATION
  Report Type: 
  Country: None (occurrence: None)
  Receive Date: 20111027
  Receipt Date: 20111017
  Transmission Date: 20120403
  Serious: Yes (Other)
  Sender: FDA-Public Use
  Company Number: US-BAYER-2011-028533

PATIENT
  Age: 41 Year
  Sex: Female
  Weight: 81.179 kg

DRUGS (3)
  1. FEXOFENADINE [Concomitant]
     Indication: ANTIALLERGIC THERAPY
     Dosage: 180 MG, UNK
     Route: 048
     Dates: start: 20060911, end: 20061011
  2. YASMIN [Suspect]
     Indication: PREMENSTRUAL SYNDROME
     Dosage: UNK
     Dates: start: 20050701, end: 20050801
  3. YASMIN [Suspect]
     Dosage: UNK
     Dates: start: 20060125, end: 20061230

REACTIONS (8)
  - INJURY [None]
  - PAIN [None]
  - STRESS [None]
  - MOOD SWINGS [None]
  - CHOLECYSTITIS CHRONIC [None]
  - GALLBLADDER CHOLESTEROLOSIS [None]
  - GALLBLADDER OPERATION [None]
  - ANXIETY [None]
